FAERS Safety Report 5258837-5 (Version None)
Quarter: 2007Q1

REPORT INFORMATION
  Report Type: 
  Country: None (occurrence: None)
  Receive Date: 20070308
  Receipt Date: 20070306
  Transmission Date: 20070707
  Serious: Yes (Other)
  Sender: FDA-Public Use
  Company Number: CA-GLAXOSMITHKLINE-A0642180A

PATIENT
  Age: 44 Year
  Sex: Female

DRUGS (1)
  1. VALTREX [Suspect]
     Route: 065

REACTIONS (5)
  - GAIT DISTURBANCE [None]
  - HYPOAESTHESIA [None]
  - PARAESTHESIA [None]
  - PERONEAL NERVE PALSY [None]
  - RASH [None]
